FAERS Safety Report 4492298-9 (Version None)
Quarter: 2004Q4

REPORT INFORMATION
  Report Type: 
  Country: None (occurrence: None)
  Receive Date: 20041103
  Receipt Date: 20040830
  Transmission Date: 20050328
  Serious: Yes (Hospitalization, Disabling)
  Sender: FDA-Public Use
  Company Number: US-MERCK-0408USA02426

PATIENT
  Age: 50 Year
  Sex: Female

DRUGS (1)
  1. CANCIDAS [Suspect]
     Indication: ASPERGILLOSIS
     Route: 042
     Dates: start: 20040412

REACTIONS (3)
  - DEPRESSIVE SYMPTOM [None]
  - MENTAL STATUS CHANGES [None]
  - MOOD ALTERED [None]
